FAERS Safety Report 24617250 (Version 1)
Quarter: 2024Q4

REPORT INFORMATION
  Report Type: Report from Study
  Country: US (occurrence: US)
  Receive Date: 20241114
  Receipt Date: 20241114
  Transmission Date: 20250115
  Serious: Yes (Other)
  Sender: JOHNSON AND JOHNSON
  Company Number: US-JNJFOC-20241125977

PATIENT
  Age: 69 Year
  Sex: Female

DRUGS (4)
  1. SPRAVATO [Suspect]
     Active Substance: ESKETAMINE
     Indication: Depression
     Dosage: 56 MG, 1 TOTAL DOSES
     Dates: start: 20240926, end: 20240926
  2. SPRAVATO [Suspect]
     Active Substance: ESKETAMINE
     Dosage: 84 MG, 9 TOTAL DOSES
     Dates: start: 20240930, end: 20241031
  3. SPRAVATO [Suspect]
     Active Substance: ESKETAMINE
     Dosage: UNSPECIFIED DOSE, 1 TOTAL DOSES
     Dates: start: 20241104, end: 20241104
  4. SPRAVATO [Suspect]
     Active Substance: ESKETAMINE
     Dosage: 84 MG,1 TOTAL DOSES
     Dates: start: 20241107, end: 20241107

REACTIONS (2)
  - Suicidal ideation [Recovered/Resolved]
  - Mental disorder [Recovered/Resolved]

NARRATIVE: CASE EVENT DATE: 20241101
